FAERS Safety Report 5614211-0 (Version None)
Quarter: 2008Q1

REPORT INFORMATION
  Report Type: 
  Country: None (occurrence: None)
  Receive Date: 20080205
  Receipt Date: 20080204
  Transmission Date: 20080703
  Serious: Yes (Hospitalization)
  Sender: FDA-Public Use
  Company Number: US-BRISTOL-MYERS SQUIBB COMPANY-13844121

PATIENT
  Age: 61 Year
  Sex: Male
  Weight: 90 kg

DRUGS (14)
  1. CARBOPLATIN [Suspect]
     Indication: NON-SMALL CELL LUNG CANCER
     Route: 042
     Dates: start: 20070626, end: 20070626
  2. ALIMTA [Suspect]
     Indication: NON-SMALL CELL LUNG CANCER
     Route: 042
     Dates: start: 20070626, end: 20070626
  3. RADIATION THERAPY [Suspect]
     Indication: NON-SMALL CELL LUNG CANCER
     Dates: start: 20070605, end: 20070629
  4. FOLIC ACID [Concomitant]
     Dates: start: 20070524
  5. VITAMIN B-12 [Concomitant]
     Dates: start: 20070524
  6. ATENOLOL [Concomitant]
  7. LEVOTHYROXINE SODIUM [Concomitant]
  8. ACTOS [Concomitant]
  9. GLIPIZIDE [Concomitant]
  10. METFORMIN HCL [Concomitant]
  11. SIMVASTATIN [Concomitant]
  12. ASPIRIN [Concomitant]
  13. POTASSIUM CHLORIDE [Concomitant]
  14. DEXAMETHASONE TAB [Concomitant]
     Dates: start: 20070604

REACTIONS (1)
  - HYPOVOLAEMIC SHOCK [None]
